FAERS Safety Report 18059610 (Version 1)
Quarter: 2020Q3

REPORT INFORMATION
  Report Type: Spontaneous
  Country: US (occurrence: US)
  Receive Date: 20200723
  Receipt Date: 20200723
  Transmission Date: 20201103
  Serious: Yes (Hospitalization, Other)
  Sender: FDA-Public Use
  Company Number: None

PATIENT
  Age: 66 Year
  Sex: Female

DRUGS (13)
  1. KLOR?CON M20 [Concomitant]
     Active Substance: POTASSIUM CHLORIDE
  2. FOLIC ACID. [Concomitant]
     Active Substance: FOLIC ACID
  3. TIZANIDINE. [Concomitant]
     Active Substance: TIZANIDINE
  4. ORPHENADRINE [Concomitant]
     Active Substance: ORPHENADRINE
  5. TORSEMIDE. [Concomitant]
     Active Substance: TORSEMIDE
  6. ANASTROZOLE. [Concomitant]
     Active Substance: ANASTROZOLE
  7. SIMVASTATIN. [Concomitant]
     Active Substance: SIMVASTATIN
  8. ALBUTEROL NED [Concomitant]
  9. ALLOPURINOL. [Concomitant]
     Active Substance: ALLOPURINOL
  10. OMEPRAZOLE. [Concomitant]
     Active Substance: OMEPRAZOLE
  11. ESBRIET [Suspect]
     Active Substance: PIRFENIDONE
     Indication: IDIOPATHIC PULMONARY FIBROSIS
     Dosage: ?          OTHER DOSE:1 TAB;?
     Route: 048
     Dates: start: 20161116
  12. DILTIAZEM. [Concomitant]
     Active Substance: DILTIAZEM
  13. PREDNISONE. [Concomitant]
     Active Substance: PREDNISONE

REACTIONS (2)
  - Malignant neoplasm of spinal cord [None]
  - Fatigue [None]

NARRATIVE: CASE EVENT DATE: 20200620
